FAERS Safety Report 13575810 (Version 2)
Quarter: 2017Q2

REPORT INFORMATION
  Report Type: Spontaneous
  Country: KW (occurrence: KW)
  Receive Date: 20170524
  Receipt Date: 20170607
  Transmission Date: 20170830
  Serious: Yes (Death, Other)
  Sender: FDA-Public Use
  Company Number: KW-SHIRE-KW201711410

PATIENT
  Age: 21 Year
  Sex: Male

DRUGS (2)
  1. ELAPRASE [Suspect]
     Active Substance: IDURSULFASE
     Indication: MUCOPOLYSACCHARIDOSIS II
     Dosage: 30 MG (6 VIALS), 1X/WEEK
     Route: 041
     Dates: start: 2008
  2. ELAPRASE [Suspect]
     Active Substance: IDURSULFASE
     Dosage: 5 VIALS, 1X/WEEK
     Route: 041

REACTIONS (1)
  - Death [Fatal]

NARRATIVE: CASE EVENT DATE: 20170519
